FAERS Safety Report 12890218 (Version 1)
Quarter: 2016Q4

REPORT INFORMATION
  Report Type: Spontaneous
  Country: US (occurrence: US)
  Receive Date: 20161027
  Receipt Date: 20161027
  Transmission Date: 20170207
  Serious: Yes (Death)
  Sender: FDA-Public Use
  Company Number: US-LPDUSPRD-20160957

PATIENT
  Age: 20 Year
  Sex: Male
  Weight: 170 kg

DRUGS (3)
  1. UNSPECIFIED VASOPRESSORS [Concomitant]
     Route: 065
  2. ASCORBIC ACID INJECTION, USP (0206-50K) [Suspect]
     Active Substance: ASCORBIC ACID
     Dosage: 66 MG/KG/HR (TOTAL 224G)
     Route: 042
  3. UNSPECIFIED ANITBIOTICS [Concomitant]
     Route: 065

REACTIONS (12)
  - Acute kidney injury [Unknown]
  - Metabolic acidosis [Unknown]
  - Lactic acidosis [Unknown]
  - Hyperoxaluria [Unknown]
  - Shock [Unknown]
  - Brain stem ischaemia [None]
  - Brain herniation [Unknown]
  - Off label use [Unknown]
  - Nephropathy [Unknown]
  - Death [Fatal]
  - Pyrexia [Unknown]
  - Brain oedema [Unknown]
